FAERS Safety Report 17248851 (Version 1)
Quarter: 2020Q1

REPORT INFORMATION
  Report Type: Spontaneous
  Country: US (occurrence: US)
  Receive Date: 20200108
  Receipt Date: 20200108
  Transmission Date: 20200409
  Serious: No
  Sender: FDA-Public Use
  Company Number: US-BAUSCH-BL-2019-066020

PATIENT
  Age: 65 Year
  Sex: Female

DRUGS (3)
  1. LOTEMAX SM [Suspect]
     Active Substance: LOTEPREDNOL ETABONATE
     Dosage: FOR 4 WEEKS POST-SURGERY; BOTH EYES (OU)
     Route: 047
     Dates: start: 201912
  2. LOTEMAX SM [Suspect]
     Active Substance: LOTEPREDNOL ETABONATE
     Indication: POSTOPERATIVE CARE
     Dosage: FOR 4 WEEKS POST-SURGERY; LEFT EYE
     Route: 047
     Dates: start: 201912, end: 201912
  3. NEVANAC [Concomitant]
     Active Substance: NEPAFENAC
     Indication: PRODUCT USED FOR UNKNOWN INDICATION

REACTIONS (3)
  - Product prescribing error [Unknown]
  - Inappropriate schedule of product administration [Unknown]
  - Headache [Unknown]

NARRATIVE: CASE EVENT DATE: 201912
